FAERS Safety Report 21866374 (Version 1)
Quarter: 2023Q1

REPORT INFORMATION
  Report Type: Report from Study
  Country: SG (occurrence: None)
  Receive Date: 20230116
  Receipt Date: 20230116
  Transmission Date: 20230418
  Serious: Yes (Death, Hospitalization)
  Sender: FDA-Public Use
  Company Number: SG-ROCHE-3261164

PATIENT
  Age: 48 Year
  Sex: Male

DRUGS (6)
  1. ATEZOLIZUMAB [Suspect]
     Active Substance: ATEZOLIZUMAB
     Indication: Hepatocellular carcinoma
     Route: 042
     Dates: start: 20220907, end: 20220907
  2. BEVACIZUMAB [Suspect]
     Active Substance: BEVACIZUMAB
     Indication: Hepatocellular carcinoma
     Route: 042
     Dates: start: 20220907, end: 20220907
  3. INVESTIGATIONAL PRODUCT [Suspect]
     Active Substance: INVESTIGATIONAL PRODUCT
     Indication: Hepatocellular carcinoma
     Route: 042
     Dates: start: 20220830, end: 20220916
  4. INVESTIGATIONAL PRODUCT [Suspect]
     Active Substance: INVESTIGATIONAL PRODUCT
     Route: 042
     Dates: start: 20220831, end: 20220916
  5. INVESTIGATIONAL PRODUCT [Suspect]
     Active Substance: INVESTIGATIONAL PRODUCT
     Route: 042
     Dates: start: 20220831, end: 20220907
  6. ENTECAVIR [Concomitant]
     Active Substance: ENTECAVIR
     Route: 048

REACTIONS (3)
  - Hypertransaminasaemia [Unknown]
  - Disease progression [Fatal]
  - Jaundice [Unknown]

NARRATIVE: CASE EVENT DATE: 20220912
